FAERS Safety Report 9124268 (Version 2)
Quarter: 2013Q1

REPORT INFORMATION
  Report Type: Spontaneous
  Country: US (occurrence: US)
  Receive Date: 20130227
  Receipt Date: 20130306
  Transmission Date: 20140127
  Serious: Yes (Other)
  Sender: FDA-Public Use
  Company Number: US-UCBSA-079244

PATIENT
  Sex: Female
  Weight: 63 kg

DRUGS (2)
  1. CIMZIA [Suspect]
     Dates: start: 20110831
  2. NO CONCOMITANT MEDICATION [Concomitant]

REACTIONS (1)
  - Herpes zoster [Unknown]
